FAERS Safety Report 20890573 (Version 1)
Quarter: 2022Q2

REPORT INFORMATION
  Report Type: Spontaneous
  Country: US (occurrence: US)
  Receive Date: 20220530
  Receipt Date: 20220530
  Transmission Date: 20220721
  Serious: Yes (Hospitalization, Other)
  Sender: FDA-Public Use
  Company Number: US-BRISTOL-MYERS SQUIBB COMPANY-2022-042694

PATIENT
  Age: 75 Year
  Sex: Male
  Weight: 139.70 kg

DRUGS (1)
  1. REVLIMID [Suspect]
     Active Substance: LENALIDOMIDE
     Indication: Plasma cell myeloma
     Dosage: 3 WEEK, 1 WEEK OFF
     Route: 048
     Dates: start: 20211209

REACTIONS (1)
  - Pneumonia [Unknown]
